FAERS Safety Report 6727675-6 (Version None)
Quarter: 2010Q2

REPORT INFORMATION
  Report Type: 
  Country: None (occurrence: None)
  Receive Date: 20100514
  Receipt Date: 20100514
  Transmission Date: 20101027
  Serious: Yes (Disabling)
  Sender: FDA-Public Use
  Company Number: None

PATIENT
  Age: 67 Year
  Sex: Female
  Weight: 94.3482 kg

DRUGS (1)
  1. AMLODIPINE [Suspect]
     Indication: HEART RATE ABNORMAL

REACTIONS (5)
  - DEFORMITY [None]
  - LIP DISORDER [None]
  - LIP EXFOLIATION [None]
  - LIP HAEMORRHAGE [None]
  - LIP SWELLING [None]
